FAERS Safety Report 7929085-2 (Version None)
Quarter: 2011Q4

REPORT INFORMATION
  Report Type: 
  Country: None (occurrence: None)
  Receive Date: 20111119
  Receipt Date: 20111114
  Transmission Date: 20120403
  Serious: Yes (Death)
  Sender: FDA-Public Use
  Company Number: CA-ASTRAZENECA-2011SE68749

PATIENT
  Age: 83 Year
  Sex: Female

DRUGS (2)
  1. NEXIUM [Suspect]
     Route: 048
  2. LEVOTHYROXINE SODIUM [Concomitant]

REACTIONS (2)
  - CONFUSIONAL STATE [None]
  - FUNGAL INFECTION [None]
